FAERS Safety Report 10153321 (Version 3)
Quarter: 2015Q1

REPORT INFORMATION
  Report Type: Spontaneous
  Country: IT (occurrence: IT)
  Receive Date: 20140505
  Receipt Date: 20150202
  Transmission Date: 20150720
  Serious: Yes (Other)
  Sender: FDA-Public Use
  Company Number: IT-ACTAVIS-2014-08920

PATIENT
  Age: 78 Year
  Sex: Male

DRUGS (9)
  1. TOP-NITRO [Concomitant]
     Active Substance: NITROGLYCERIN
     Indication: PRODUCT USED FOR UNKNOWN INDICATION
     Dosage: UNK UNK, UNKNOWN
     Route: 065
  2. ISOCOLAN GIULIANI [Suspect]
     Active Substance: BICARBONATE ION\POLYETHYLENE GLYCOL 4000\POTASSIUM CATION\SODIUM CATION\SODIUM SULFATE ANHYDROUS
     Indication: COLONOSCOPY
     Dosage: 16 DF, DAILY
     Route: 048
     Dates: start: 20140113, end: 20140113
  3. LASIX [Suspect]
     Active Substance: FUROSEMIDE
     Indication: CARDIAC FAILURE
     Dosage: 250 MG, DAILY
     Route: 048
     Dates: start: 20140103, end: 20140113
  4. LANSOX [Concomitant]
     Active Substance: LANSOPRAZOLE
     Indication: PRODUCT USED FOR UNKNOWN INDICATION
     Dosage: UNK UNK, UNKNOWN
     Route: 065
  5. EPREX [Concomitant]
     Active Substance: ERYTHROPOIETIN
     Indication: PRODUCT USED FOR UNKNOWN INDICATION
     Dosage: UNK UNK, UNKNOWN
     Route: 065
  6. LUVION                             /00252501/ [Suspect]
     Active Substance: CANRENONE
     Indication: PRODUCT USED FOR UNKNOWN INDICATION
     Dosage: 50 MG, DAILY
     Route: 048
     Dates: start: 20140103, end: 20140115
  7. REPAGLINIDE (UNKNOWN) [Suspect]
     Active Substance: REPAGLINIDE
     Indication: DIABETES MELLITUS
     Dosage: 0.5 MG, DAILY
     Route: 048
     Dates: start: 20140110, end: 20140115
  8. ZAROXOLYN [Suspect]
     Active Substance: METOLAZONE
     Indication: CARDIAC FAILURE
     Dosage: 5 MG, DAILY
     Route: 048
     Dates: start: 20140111, end: 20140113
  9. IPRAXA [Concomitant]
     Indication: PRODUCT USED FOR UNKNOWN INDICATION
     Dosage: UNK UNK, UNKNOWN
     Route: 065

REACTIONS (1)
  - Chronic kidney disease [Recovered/Resolved]

NARRATIVE: CASE EVENT DATE: 20140116
